FAERS Safety Report 6754808-8 (Version None)
Quarter: 2010Q2

REPORT INFORMATION
  Report Type: 
  Country: None (occurrence: None)
  Receive Date: 20100601
  Receipt Date: 20100514
  Transmission Date: 20101027
  Serious: Yes (Death)
  Sender: FDA-Public Use
  Company Number: BVT-000540

PATIENT
  Age: 14 Year
  Sex: Female

DRUGS (1)
  1. KINERET [Suspect]
     Dosage: (100 MG SUBCUTANEOUS)
     Route: 058

REACTIONS (3)
  - DEVICE DISLOCATION [None]
  - OBSTRUCTIVE AIRWAYS DISORDER [None]
  - RESPIRATORY DISTRESS [None]
